FAERS Safety Report 7916558-1 (Version None)
Quarter: 2011Q4

REPORT INFORMATION
  Report Type: 
  Country: None (occurrence: None)
  Receive Date: 20111115
  Receipt Date: 20111021
  Transmission Date: 20120403
  Serious: Yes (Death, Other)
  Sender: FDA-Public Use
  Company Number: 2011PROUSA00730

PATIENT
  Age: 73 Year
  Sex: Male
  Weight: 108.4 kg

DRUGS (1)
  1. PROVENGE [Suspect]
     Indication: PROSTATE CANCER METASTATIC
     Dosage: 250 ML, SINGLE INTRAVENOUS
     Route: 042
     Dates: start: 20111013, end: 20111013

REACTIONS (3)
  - NEOPLASM PROGRESSION [None]
  - RENAL FAILURE ACUTE [None]
  - PROSTATE CANCER [None]
